FAERS Safety Report 13579764 (Version 1)
Quarter: 2017Q2

REPORT INFORMATION
  Report Type: Spontaneous
  Country: US (occurrence: US)
  Receive Date: 20170525
  Receipt Date: 20170525
  Transmission Date: 20170830
  Serious: Yes (Life-Threatening, Other)
  Sender: FDA-Public Use
  Company Number: US-CLINIGEN GROUP PLC/ CLINIGEN HEALTHCARE LTD-E2B_00005541

PATIENT
  Sex: Male
  Weight: 78.2 kg

DRUGS (5)
  1. FOSCAVIR [Suspect]
     Active Substance: FOSCARNET SODIUM
     Indication: CYTOMEGALOVIRUS INFECTION
     Dosage: DOSE: 60 MG/KG TOTAL DAILY DOSE: 120 MG/KG
     Route: 042
     Dates: start: 19950313, end: 19950326
  2. GANCICLOVIR. [Concomitant]
     Active Substance: GANCICLOVIR
     Route: 042
     Dates: start: 19950412
  3. INTRAVENOUS FLUIDS [Concomitant]
     Indication: DEHYDRATION
     Route: 042
  4. GANCICLOVIR. [Concomitant]
     Active Substance: GANCICLOVIR
     Indication: CYTOMEGALOVIRUS INFECTION
     Route: 042
  5. FOSCAVIR [Suspect]
     Active Substance: FOSCARNET SODIUM
     Dosage: DOSE: 90 MG/KG TOTAL DAILY DOSE: 90 MG/KG
     Route: 042
     Dates: start: 19950327, end: 19950331

REACTIONS (7)
  - Vomiting [Recovered/Resolved]
  - Acute kidney injury [Recovering/Resolving]
  - Decreased appetite [Recovered/Resolved]
  - Photosensitivity reaction [Recovering/Resolving]
  - Weight decreased [Recovered/Resolved]
  - Hypokalaemia [Recovered/Resolved]
  - Alopecia [Not Recovered/Not Resolved]

NARRATIVE: CASE EVENT DATE: 19950320
